FAERS Safety Report 14630047 (Version 1)
Quarter: 2018Q1

REPORT INFORMATION
  Report Type: Spontaneous
  Country: US (occurrence: US)
  Receive Date: 20180313
  Receipt Date: 20180313
  Transmission Date: 20180509
  Serious: Yes (Life-Threatening, Disabling)
  Sender: FDA-Public Use
  Company Number: None

PATIENT
  Age: 48 Year
  Sex: Female

DRUGS (3)
  1. LORAZEPAM. [Concomitant]
     Active Substance: LORAZEPAM
  2. ESTRADIOL. [Concomitant]
     Active Substance: ESTRADIOL
  3. TRINTELLIX [Suspect]
     Active Substance: VORTIOXETINE HYDROBROMIDE
     Indication: ANXIETY
     Dosage: DOSE 1 1/2 PILLS
     Route: 048
     Dates: start: 2017, end: 201802

REACTIONS (8)
  - Nausea [None]
  - Vomiting [None]
  - Constipation [None]
  - Thinking abnormal [None]
  - Depressed mood [None]
  - Anxiety [None]
  - Suicidal ideation [None]
  - Depression [None]

NARRATIVE: CASE EVENT DATE: 2018
